FAERS Safety Report 6882499-4 (Version None)
Quarter: 2010Q3

REPORT INFORMATION
  Report Type: 
  Country: None (occurrence: None)
  Receive Date: 20100729
  Receipt Date: 20100721
  Transmission Date: 20110219
  Serious: Yes (Other)
  Sender: FDA-Public Use
  Company Number: US-ASTRAZENECA-2007UW01746

PATIENT
  Age: 608 Month
  Sex: Female
  Weight: 80.3 kg

DRUGS (22)
  1. SEROQUEL [Suspect]
     Indication: SLEEP DISORDER
     Dosage: 25 - 600 MG
     Route: 048
     Dates: start: 20030128, end: 20050912
  2. SEROQUEL [Suspect]
     Indication: DEPRESSION
     Dosage: 25 - 600 MG
     Route: 048
     Dates: start: 20030128, end: 20050912
  3. SEROQUEL [Suspect]
     Indication: SCHIZOPHRENIA
     Dosage: 25 - 600 MG
     Route: 048
     Dates: start: 20030128, end: 20050912
  4. SEROQUEL [Suspect]
     Indication: BIPOLAR DISORDER
     Dosage: 25 - 600 MG
     Route: 048
     Dates: start: 20030128, end: 20050912
  5. SEROQUEL [Suspect]
     Dosage: 300 MG TO 600 MG, 800 MG
     Route: 048
     Dates: start: 20030201, end: 20060409
  6. SEROQUEL [Suspect]
     Dosage: 300 MG TO 600 MG, 800 MG
     Route: 048
     Dates: start: 20030201, end: 20060409
  7. SEROQUEL [Suspect]
     Dosage: 300 MG TO 600 MG, 800 MG
     Route: 048
     Dates: start: 20030201, end: 20060409
  8. SEROQUEL [Suspect]
     Dosage: 300 MG TO 600 MG, 800 MG
     Route: 048
     Dates: start: 20030201, end: 20060409
  9. SEROQUEL [Suspect]
     Route: 048
     Dates: start: 20030311
  10. SEROQUEL [Suspect]
     Route: 048
     Dates: start: 20030311
  11. SEROQUEL [Suspect]
     Route: 048
     Dates: start: 20030311
  12. SEROQUEL [Suspect]
     Route: 048
     Dates: start: 20030311
  13. SEROQUEL [Suspect]
     Dosage: 25 - 600 MG
     Route: 048
     Dates: start: 20030102, end: 20051222
  14. SEROQUEL [Suspect]
     Dosage: 25 - 600 MG
     Route: 048
     Dates: start: 20030102, end: 20051222
  15. SEROQUEL [Suspect]
     Dosage: 25 - 600 MG
     Route: 048
     Dates: start: 20030102, end: 20051222
  16. SEROQUEL [Suspect]
     Dosage: 25 - 600 MG
     Route: 048
     Dates: start: 20030102, end: 20051222
  17. RISPERDAL [Concomitant]
     Dates: start: 20050901
  18. EFFEXOR [Concomitant]
     Dosage: 38.5 - 150 MG
     Route: 048
     Dates: start: 20030128
  19. ZOLOFT [Concomitant]
     Dates: start: 20030128
  20. ZOLOFT [Concomitant]
     Dosage: 100 MG 1 1/2 TAB QDAY, 100MG 2 TABLETS QDAY
     Dates: start: 20030311
  21. PROVIGIL [Concomitant]
     Dosage: 200 MG 1/2-1 QAM
     Dates: start: 20030311
  22. TRAZODONE [Concomitant]
     Dosage: 50 MG TABLETS 2 PO QHS
     Dates: start: 20030311

REACTIONS (2)
  - NEUROPATHY PERIPHERAL [None]
  - TYPE 2 DIABETES MELLITUS [None]
